FAERS Safety Report 10518684 (Version 1)
Quarter: 2014Q4

REPORT INFORMATION
  Report Type: Spontaneous
  Country: FI (occurrence: FI)
  Receive Date: 20141015
  Receipt Date: 20141015
  Transmission Date: 20150528
  Serious: Yes (Other)
  Sender: FDA-Public Use
  Company Number: FI-LEO PHARMA-228392

PATIENT
  Age: 58 Year
  Sex: Female

DRUGS (1)
  1. PICATO [Suspect]
     Active Substance: INGENOL MEBUTATE
     Indication: PRODUCT USED FOR UNKNOWN INDICATION

REACTIONS (5)
  - Application site pustules [Recovered/Resolved]
  - Asthenia [Recovered/Resolved]
  - Application site swelling [Recovered/Resolved]
  - Application site reaction [Recovered/Resolved]
  - Eye swelling [Recovered/Resolved]
